FAERS Safety Report 7984634-3 (Version None)
Quarter: 2011Q4

REPORT INFORMATION
  Report Type: 
  Country: None (occurrence: None)
  Receive Date: 20111214
  Receipt Date: 20111129
  Transmission Date: 20120403
  Serious: Yes (Hospitalization)
  Sender: FDA-Public Use
  Company Number: SPI201100321

PATIENT

DRUGS (1)
  1. AMITIZA [Suspect]

REACTIONS (1)
  - DEHYDRATION [None]
